FAERS Safety Report 5079337-1 (Version None)
Quarter: 2006Q3

REPORT INFORMATION
  Report Type: 
  Country: None (occurrence: None)
  Receive Date: 20060808
  Receipt Date: 20060727
  Transmission Date: 20061208
  Serious: Yes (Other)
  Sender: FDA-Public Use
  Company Number: 2006091758

PATIENT
  Age: 26 Year
  Sex: Male
  Weight: 77.1115 kg

DRUGS (1)
  1. FRESHBURST LISTERINE (MENTHOL, METHYL SALICYLATE, EUCALYPTOL, THYMOL) [Suspect]
     Indication: FEELING DRUNK
     Dosage: 1/2 OF A BOTTLE ONCE, ORAL
     Route: 048
     Dates: start: 20060727, end: 20060727

REACTIONS (3)
  - FEELING DRUNK [None]
  - INCORRECT ROUTE OF DRUG ADMINISTRATION [None]
  - INTENTIONAL DRUG MISUSE [None]
